FAERS Safety Report 7327115-2 (Version None)
Quarter: 2011Q1

REPORT INFORMATION
  Report Type: 
  Country: None (occurrence: None)
  Receive Date: 20110302
  Receipt Date: 20110214
  Transmission Date: 20110831
  Serious: Yes (Other)
  Sender: FDA-Public Use
  Company Number: PHHY2010US50305

PATIENT
  Sex: Male
  Weight: 77.098 kg

DRUGS (11)
  1. EXTAVIA [Suspect]
     Indication: MULTIPLE SCLEROSIS
     Dosage: 0.30 MG, QOD
     Route: 058
     Dates: start: 20100710
  2. ALEVE [Concomitant]
  3. TRILIPIX [Concomitant]
  4. LYRICA [Concomitant]
  5. NOVANTRONE [Concomitant]
     Dosage: UNK
  6. EXTAVIA [Suspect]
     Dosage: 0.25 MG
     Route: 058
     Dates: start: 20100719
  7. EXTAVIA [Suspect]
     Dosage: 0.30 MG, QOD
     Route: 058
  8. BACLOFEN [Concomitant]
  9. MORPHINE [Concomitant]
     Dosage: UNK
  10. FORTEO [Concomitant]
  11. LORTAB [Concomitant]
     Dosage: UNK

REACTIONS (19)
  - BRONCHITIS [None]
  - FEELING OF BODY TEMPERATURE CHANGE [None]
  - ASTHENIA [None]
  - DIARRHOEA [None]
  - LIMB DISCOMFORT [None]
  - PYREXIA [None]
  - FEELING ABNORMAL [None]
  - INFLUENZA LIKE ILLNESS [None]
  - MALAISE [None]
  - FATIGUE [None]
  - CHRONIC OBSTRUCTIVE PULMONARY DISEASE [None]
  - QUALITY OF LIFE DECREASED [None]
  - GAIT DISTURBANCE [None]
  - MYALGIA [None]
  - ABDOMINAL PAIN UPPER [None]
  - PNEUMONIA [None]
  - DYSPNOEA [None]
  - CHILLS [None]
  - HYPERHIDROSIS [None]
